FAERS Safety Report 26113954 (Version 1)
Quarter: 2025Q4

REPORT INFORMATION
  Report Type: Spontaneous
  Country: US (occurrence: US)
  Receive Date: 20251202
  Receipt Date: 20251202
  Transmission Date: 20260117
  Serious: Yes (Other)
  Sender: PFIZER
  Company Number: US-PFIZER INC-PV202500138486

PATIENT
  Age: 34 Year
  Sex: Male

DRUGS (3)
  1. BLEOMYCIN SULFATE [Suspect]
     Active Substance: BLEOMYCIN SULFATE
     Indication: Germ cell cancer metastatic
     Dosage: UNK
  2. ETOPOSIDE [Concomitant]
     Active Substance: ETOPOSIDE
     Indication: Germ cell cancer metastatic
     Dosage: UNK
  3. CISPLATIN [Concomitant]
     Active Substance: CISPLATIN
     Indication: Germ cell cancer metastatic
     Dosage: UNK

REACTIONS (3)
  - Pulmonary toxicity [Unknown]
  - Pneumonia [Unknown]
  - Acute respiratory failure [Unknown]
